FAERS Safety Report 6137207-1 (Version None)
Quarter: 2009Q1

REPORT INFORMATION
  Report Type: 
  Country: None (occurrence: None)
  Receive Date: 20090330
  Receipt Date: 20080602
  Transmission Date: 20090719
  Serious: Yes (Death, Life-Threatening, Hospitalization)
  Sender: FDA-Public Use
  Company Number: US-BRISTOL-MYERS SQUIBB COMPANY-14561294

PATIENT
  Age: 66 Year
  Sex: Male
  Weight: 77 kg

DRUGS (10)
  1. CETUXIMAB [Suspect]
     Indication: NON-SMALL CELL LUNG CANCER
     Dosage: MOST RECENT INFUSION ON 20MAY2008: 472 MG, 1 IN 1 WEEK
     Dates: start: 20080513, end: 20080513
  2. PACLITAXEL [Suspect]
     Indication: NON-SMALL CELL LUNG CANCER
     Route: 042
     Dates: start: 20080513, end: 20080513
  3. CARBOPLATIN [Suspect]
     Indication: NON-SMALL CELL LUNG CANCER
     Route: 042
     Dates: start: 20080513, end: 20080513
  4. BEVACIZUMAB [Suspect]
     Indication: NON-SMALL CELL LUNG CANCER
     Route: 042
     Dates: start: 20080520, end: 20080520
  5. LIPITOR [Concomitant]
     Indication: HYPERCHOLESTEROLAEMIA
     Dates: start: 20050101
  6. NORCO [Concomitant]
     Indication: MUSCULOSKELETAL PAIN
     Dates: start: 20080507
  7. DEXAMETHASONE [Concomitant]
     Indication: PREMEDICATION
     Dates: start: 20080513
  8. PEPCID [Concomitant]
     Indication: PREMEDICATION
     Dates: start: 20080513
  9. BENADRYL [Concomitant]
     Indication: PREMEDICATION
     Dates: start: 20080513
  10. KYTRIL [Concomitant]
     Indication: PREMEDICATION
     Dates: start: 20080513

REACTIONS (5)
  - ACUTE RESPIRATORY DISTRESS SYNDROME [None]
  - HYPOTENSION [None]
  - LUNG INFILTRATION [None]
  - RESPIRATORY FAILURE [None]
  - SEPTIC SHOCK [None]
